FAERS Safety Report 4431308-1 (Version None)
Quarter: 2004Q3

REPORT INFORMATION
  Report Type: 
  Country: None (occurrence: None)
  Receive Date: 20040817
  Receipt Date: 20040809
  Transmission Date: 20050211
  Serious: Yes (Hospitalization)
  Sender: FDA-Public Use
  Company Number: 2004227564SE

PATIENT
  Age: 85 Year
  Sex: Male

DRUGS (5)
  1. SALURES-K       (POTASSIUM, BENDROFLUMETHIAZIDE) [Suspect]
     Indication: CARDIAC FAILURE
     Dosage: DAILY, ORAL
     Route: 048
     Dates: end: 20040405
  2. LOGIRENE (FUROSEMIDE, AMILORIDE) TABLET [Suspect]
     Indication: CARDIAC FAILURE
     Dosage: DAILY, ORAL
     Route: 048
     Dates: start: 20040101
  3. ALDACTONE [Suspect]
     Indication: CARDIAC FAILURE
     Dosage: 50 MG, DAILY, ORAL
     Route: 048
     Dates: start: 20040101
  4. ATROVENT [Concomitant]
  5. TROMBYL [Concomitant]

REACTIONS (6)
  - BLOOD CREATININE INCREASED [None]
  - DIZZINESS [None]
  - FATIGUE [None]
  - HYPERKALAEMIA [None]
  - VERTIGO [None]
  - WEIGHT DECREASED [None]
